FAERS Safety Report 8596722-1 (Version None)
Quarter: 2012Q3

REPORT INFORMATION
  Report Type: 
  Country: None (occurrence: None)
  Receive Date: 20120815
  Receipt Date: 20120629
  Transmission Date: 20120928
  Serious: No
  Sender: FDA-Public Use
  Company Number: US-ASTRAZENECA-2012SE44635

PATIENT
  Sex: Female
  Weight: 65.8 kg

DRUGS (6)
  1. SEROQUEL [Suspect]
     Route: 048
  2. SEROQUEL [Suspect]
     Indication: ANXIETY
     Route: 048
  3. SEROQUEL [Suspect]
     Indication: HALLUCINATION
     Route: 048
  4. SEROQUEL [Suspect]
     Route: 048
  5. ARICEPT [Concomitant]
     Indication: DEMENTIA
     Dosage: 25MG OR 50MG QD
  6. TROPEL [Concomitant]
     Indication: ANEURYSM

REACTIONS (2)
  - ABNORMAL BEHAVIOUR [None]
  - OFF LABEL USE [None]
